FAERS Safety Report 8987879 (Version 2)
Quarter: 2012Q4

REPORT INFORMATION
  Report Type: Report from Study
  Country: US (occurrence: US)
  Receive Date: 20121227
  Receipt Date: 20121227
  Transmission Date: 20130627
  Serious: Yes (Other)
  Sender: FDA-Public Use
  Company Number: US-ABBOTT-12P-163-1017540-00

PATIENT
  Sex: Female
  Weight: 57.66 kg

DRUGS (3)
  1. HUMIRA [Suspect]
     Indication: CROHN^S DISEASE
     Route: 058
     Dates: start: 2009, end: 201101
  2. IMURAN [Suspect]
     Indication: CROHN^S DISEASE
     Dates: end: 201101
  3. ALLOPURINOL [Suspect]
     Indication: GOUT
     Dates: end: 201101

REACTIONS (6)
  - Malnutrition [Recovering/Resolving]
  - Renal impairment [Not Recovered/Not Resolved]
  - Dehydration [Unknown]
  - Haemoglobin decreased [Recovering/Resolving]
  - Weight decreased [Recovering/Resolving]
  - Crohn^s disease [Not Recovered/Not Resolved]
